FAERS Safety Report 23225272 (Version 2)
Quarter: 2023Q4

REPORT INFORMATION
  Report Type: Report from Study
  Country: US (occurrence: US)
  Receive Date: 20231124
  Receipt Date: 20231129
  Transmission Date: 20240109
  Serious: Yes (Hospitalization)
  Sender: FDA-Public Use
  Company Number: US-Eisai-EC-2023-153392

PATIENT
  Age: 65 Year
  Sex: Male
  Weight: 63.3 kg

DRUGS (5)
  1. LENVATINIB [Suspect]
     Active Substance: LENVATINIB
     Indication: Renal cell carcinoma
     Route: 048
     Dates: start: 20230410, end: 20231023
  2. PEMBROLIZUMAB [Suspect]
     Active Substance: PEMBROLIZUMAB
     Indication: Renal cell carcinoma
     Dosage: QUAVONLIMAB 25 MG (+) PEMBROLIZUMAB 400 MG (MK-1308A)
     Route: 041
     Dates: start: 20230410, end: 20231005
  3. ATORVASTATIN [Concomitant]
     Active Substance: ATORVASTATIN
     Dates: start: 20190808
  4. APIXABAN [Concomitant]
     Active Substance: APIXABAN
     Dates: start: 20210503
  5. QUAVONLIMAB [Suspect]
     Active Substance: QUAVONLIMAB
     Dates: start: 20230410

REACTIONS (3)
  - Colitis [Recovering/Resolving]
  - Alanine aminotransferase increased [Recovering/Resolving]
  - Immune-mediated hepatitis [Recovering/Resolving]

NARRATIVE: CASE EVENT DATE: 20231115
